FAERS Safety Report 16497350 (Version 1)
Quarter: 2019Q2

REPORT INFORMATION
  Report Type: Spontaneous
  Country: DE (occurrence: DE)
  Receive Date: 20190628
  Receipt Date: 20190628
  Transmission Date: 20190711
  Serious: Yes (Death, Congenital Anomaly, Other)
  Sender: FDA-Public Use
  Company Number: DE-009507513-1906DEU009760

PATIENT

DRUGS (3)
  1. SINGULAIR [Suspect]
     Active Substance: MONTELUKAST SODIUM
     Indication: ASTHMA
     Dosage: 10 MG, ONCE DAILY (QD)
     Route: 064
     Dates: start: 20090623, end: 201112
  2. ATMADISC [Suspect]
     Active Substance: FLUTICASONE PROPIONATE\SALMETEROL XINAFOATE
     Dosage: 50/250; DOSE: 2 (UNITS NOT PROVIDED)
     Route: 064
     Dates: start: 20090623, end: 201112
  3. EUTHYROX [Concomitant]
     Active Substance: LEVOTHYROXINE SODIUM
     Indication: HYPERTHYROIDISM
     Dosage: 75 ?G, ONCE DAILY (QD)
     Route: 064
     Dates: start: 2005, end: 201112

REACTIONS (2)
  - Maternal exposure during pregnancy [Recovered/Resolved]
  - Foetal malformation [Fatal]

NARRATIVE: CASE EVENT DATE: 2011
